FAERS Safety Report 10542869 (Version 2)
Quarter: 2014Q4

REPORT INFORMATION
  Report Type: Spontaneous
  Country: IT (occurrence: IT)
  Receive Date: 20141027
  Receipt Date: 20141027
  Transmission Date: 20150529
  Serious: Yes (Other)
  Sender: FDA-Public Use
  Company Number: PHHY2014IT044001

PATIENT
  Age: 50 Year
  Sex: Female

DRUGS (4)
  1. TOPAMAX [Suspect]
     Active Substance: TOPIRAMATE
     Indication: OVERDOSE
     Dosage: 2500 MG, DAILY
     Route: 048
     Dates: start: 20140106, end: 20140106
  2. TRITTICO [Suspect]
     Active Substance: TRAZODONE HYDROCHLORIDE
     Indication: OVERDOSE
     Dosage: 1050 MG, DAILY
     Dates: start: 20140106, end: 20140106
  3. TOLEP [Suspect]
     Active Substance: OXCARBAZEPINE
     Indication: OVERDOSE
     Dosage: 300 MG, DAILY
     Route: 048
     Dates: start: 20140106, end: 20140106
  4. LORAZEPAM ABC [Suspect]
     Active Substance: LORAZEPAM
     Indication: OVERDOSE
     Dosage: 25 MG, DAILY
     Dates: start: 20140106, end: 20140106

REACTIONS (2)
  - Self injurious behaviour [Unknown]
  - Depressed level of consciousness [Unknown]

NARRATIVE: CASE EVENT DATE: 20140106
